FAERS Safety Report 5154168-2 (Version None)
Quarter: 2006Q4

REPORT INFORMATION
  Report Type: 
  Country: None (occurrence: None)
  Receive Date: 20061120
  Receipt Date: 20061114
  Transmission Date: 20070319
  Serious: Yes (Other)
  Sender: FDA-Public Use
  Company Number: US-ROCHE-471320

PATIENT
  Age: 7 Year
  Sex: Male

DRUGS (1)
  1. TAMIFLU [Suspect]
     Indication: DRUG USE FOR UNKNOWN INDICATION
     Dosage: START DATE: IN THE SPRING OF 2006.
     Route: 065
     Dates: start: 20060615

REACTIONS (3)
  - HALLUCINATION, VISUAL [None]
  - MALAISE [None]
  - PERSONALITY CHANGE [None]
